FAERS Safety Report 25063871 (Version 1)
Quarter: 2025Q1

REPORT INFORMATION
  Report Type: Spontaneous
  Country: US (occurrence: US)
  Receive Date: 20250311
  Receipt Date: 20250311
  Transmission Date: 20250409
  Serious: No
  Sender: Apozeal Pharmaceuticals
  Company Number: US-Apozeal Pharmaceuticals-2172672

PATIENT

DRUGS (5)
  1. HYDROXYZINE HYDROCHLORIDE [Suspect]
     Active Substance: HYDROXYZINE HYDROCHLORIDE
     Indication: Rash pruritic
  2. PREDNISONE [Suspect]
     Active Substance: PREDNISONE
  3. BENADRYL [Suspect]
     Active Substance: DIPHENHYDRAMINE HYDROCHLORIDE
  4. HYDROCORTISONE ACETATE [Suspect]
     Active Substance: HYDROCORTISONE ACETATE
  5. PEPCID [Suspect]
     Active Substance: FAMOTIDINE

REACTIONS (3)
  - Rash pruritic [Unknown]
  - Drug ineffective [Unknown]
  - Condition aggravated [Unknown]
